FAERS Safety Report 8292879-0 (Version None)
Quarter: 2012Q2

REPORT INFORMATION
  Report Type: 
  Country: None (occurrence: None)
  Receive Date: 20120417
  Receipt Date: 20120215
  Transmission Date: 20120825
  Serious: No
  Sender: FDA-Public Use
  Company Number: US-ASTRAZENECA-2012SE08344

PATIENT
  Age: 80 Year
  Sex: Female

DRUGS (4)
  1. CRESTOR [Suspect]
     Route: 048
  2. PLAVIX [Concomitant]
  3. OMEPRAZOLE [Suspect]
     Route: 048
  4. NEXIUM [Suspect]
     Route: 048

REACTIONS (2)
  - NASOPHARYNGITIS [None]
  - INHIBITORY DRUG INTERACTION [None]
